FAERS Safety Report 7982607-8 (Version None)
Quarter: 2011Q4

REPORT INFORMATION
  Report Type: 
  Country: None (occurrence: None)
  Receive Date: 20111215
  Receipt Date: 20111206
  Transmission Date: 20120403
  Serious: Yes (Hospitalization)
  Sender: FDA-Public Use
  Company Number: JP-GLAXOSMITHKLINE-B0757069A

PATIENT
  Sex: Female

DRUGS (6)
  1. LAMICTAL [Suspect]
     Indication: EPILEPSY
     Dosage: 75MG PER DAY
     Route: 048
     Dates: start: 20100218
  2. PHENYTOIN SODIUM CAP [Concomitant]
     Indication: EPILEPSY
     Route: 048
  3. LAMICTAL [Suspect]
     Route: 048
  4. PHENYTOIN [Concomitant]
     Indication: EPILEPSY
     Dosage: 300MG PER DAY
     Route: 048
     Dates: start: 20100414, end: 20111011
  5. CANDESARTAN CILEXETIL [Concomitant]
     Indication: HYPERTENSION
     Dosage: 12MG PER DAY
     Route: 048
     Dates: start: 20090617
  6. OMEPRAZOLE [Concomitant]
     Indication: GASTRIC ULCER HAEMORRHAGE
     Dosage: 10MG PER DAY
     Route: 048
     Dates: start: 20110703

REACTIONS (6)
  - BLOOD IMMUNOGLOBULIN A DECREASED [None]
  - BLOOD IMMUNOGLOBULIN M DECREASED [None]
  - LEUKOPENIA [None]
  - BLOOD IMMUNOGLOBULIN G DECREASED [None]
  - ERYTHROPENIA [None]
  - HYPOGAMMAGLOBULINAEMIA [None]
